FAERS Safety Report 25627847 (Version 2)
Quarter: 2025Q3

REPORT INFORMATION
  Report Type: Spontaneous
  Country: AU (occurrence: AU)
  Receive Date: 20250731
  Receipt Date: 20250829
  Transmission Date: 20251021
  Serious: Yes (Other)
  Sender: ROVIPHARM SAS
  Company Number: AU-SERVIER-S25010388

PATIENT
  Age: 45 Year
  Sex: Male

DRUGS (3)
  1. RISVAN [Suspect]
     Active Substance: RISPERIDONE
     Indication: Schizophrenia
     Dosage: 75 MG, EVERY 2 WEEKS
     Route: 030
  2. RISVAN [Suspect]
     Active Substance: RISPERIDONE
     Dosage: 75 MG, EVERY 2 WEEKS
     Route: 030
  3. RISVAN [Suspect]
     Active Substance: RISPERIDONE
     Route: 030

REACTIONS (4)
  - Schizophrenia [Not Recovered/Not Resolved]
  - Condition aggravated [Not Recovered/Not Resolved]
  - Wrong product administered [Unknown]
  - Inappropriate schedule of product administration [Unknown]
